FAERS Safety Report 9962889 (Version 3)
Quarter: 2017Q3

REPORT INFORMATION
  Report Type: Report from Study
  Country: None (occurrence: US)
  Receive Date: 20140305
  Receipt Date: 20170914
  Transmission Date: 20171128
  Serious: Yes (Death, Other)
  Sender: FDA-Public Use
  Company Number: US-ABBVIE-13P-163-1099663-00

PATIENT
  Age: 69 Year
  Sex: Female
  Weight: 56.75 kg

DRUGS (7)
  1. CALCIUM [Concomitant]
     Active Substance: CALCIUM
     Indication: MINERAL SUPPLEMENTATION
  2. VITAMIN D [Concomitant]
     Active Substance: CHOLECALCIFEROL
     Indication: VITAMIN SUPPLEMENTATION
  3. HUMIRA [Suspect]
     Active Substance: ADALIMUMAB
     Route: 058
     Dates: start: 2011, end: 20170830
  4. HUMIRA [Suspect]
     Active Substance: ADALIMUMAB
     Indication: CROHN^S DISEASE
     Route: 058
     Dates: start: 200906, end: 200906
  5. ACIPHEX [Concomitant]
     Active Substance: RABEPRAZOLE SODIUM
     Indication: PRODUCT USED FOR UNKNOWN INDICATION
  6. HUMIRA [Suspect]
     Active Substance: ADALIMUMAB
     Route: 058
     Dates: start: 200906, end: 200906
  7. HUMIRA [Suspect]
     Active Substance: ADALIMUMAB
     Route: 058
     Dates: start: 200907

REACTIONS (12)
  - Lung neoplasm malignant [Fatal]
  - Injection site pain [Recovered/Resolved]
  - Drug dose omission [Unknown]
  - Productive cough [Unknown]
  - Erythema [Unknown]
  - Back pain [Unknown]
  - Device issue [Recovered/Resolved]
  - Wrong technique in product usage process [Unknown]
  - Chills [Unknown]
  - Injection site pain [Unknown]
  - Pruritus generalised [Unknown]
  - Acne [Unknown]

NARRATIVE: CASE EVENT DATE: 20120514
